FAERS Safety Report 6294855-6 (Version None)
Quarter: 2009Q3

REPORT INFORMATION
  Report Type: 
  Country: None (occurrence: None)
  Receive Date: 20090803
  Receipt Date: 20090729
  Transmission Date: 20100115
  Serious: Yes (Death)
  Sender: FDA-Public Use
  Company Number: PHEH2009US08469

PATIENT
  Sex: Male

DRUGS (2)
  1. EXJADE [Suspect]
     Dosage: 1750 MG DAILY
     Route: 048
     Dates: start: 20090223
  2. NEXAVAR [Concomitant]
     Dosage: 200 MG, BID

REACTIONS (1)
  - DEATH [None]
